FAERS Safety Report 10151451 (Version 1)
Quarter: 2014Q2

REPORT INFORMATION
  Report Type: Spontaneous
  Country: GB (occurrence: GB)
  Receive Date: 20140504
  Receipt Date: 20140504
  Transmission Date: 20141212
  Serious: Yes (Other)
  Sender: FDA-Public Use
  Company Number: GB-BRISTOL-MYERS SQUIBB COMPANY-20684866

PATIENT
  Age: 50 Year
  Sex: Female

DRUGS (1)
  1. ABILIFY TABS 20 MG [Suspect]
     Indication: SCHIZOPHRENIA
     Route: 048
     Dates: start: 20140409

REACTIONS (2)
  - Leg amputation [Not Recovered/Not Resolved]
  - Blood sodium decreased [Not Recovered/Not Resolved]
